FAERS Safety Report 18151972 (Version 1)
Quarter: 2020Q3

REPORT INFORMATION
  Report Type: Spontaneous
  Country: US (occurrence: US)
  Receive Date: 20200814
  Receipt Date: 20200814
  Transmission Date: 20201103
  Serious: No
  Sender: FDA-Public Use
  Company Number: US-TEVA-2020-US-1814754

PATIENT
  Sex: Male

DRUGS (1)
  1. SYNRIBO [Suspect]
     Active Substance: OMACETAXINE MEPESUCCINATE
     Indication: CHRONIC MYELOID LEUKAEMIA
     Dosage: DOSAGE:2.24MG/0.64ML?FREQUENCY:BID FOR 14 DAYS OF 28 DAY CYCLE
     Route: 065
     Dates: start: 20200701

REACTIONS (3)
  - Drug intolerance [Unknown]
  - Nausea [Unknown]
  - Vomiting [Unknown]
